FAERS Safety Report 19887594 (Version 1)
Quarter: 2021Q3

REPORT INFORMATION
  Report Type: Spontaneous
  Country: ZA (occurrence: ZA)
  Receive Date: 20210928
  Receipt Date: 20210928
  Transmission Date: 20211014
  Serious: Yes (Death)
  Sender: FDA-Public Use
  Company Number: ZA-NOVOPROD-849050

PATIENT
  Age: 57 Year
  Sex: Female

DRUGS (6)
  1. CARLOC [Concomitant]
     Active Substance: CARVEDILOL
     Indication: HYPERTENSION
     Dosage: 12.50  MG
     Route: 048
     Dates: end: 202108
  2. ASTOR [Concomitant]
     Indication: BLOOD CHOLESTEROL
     Dosage: 40 MG
     Route: 048
     Dates: end: 202108
  3. BECLATE AQUANASE [Concomitant]
     Indication: HYPERSENSITIVITY
     Dosage: 50 ???G
     Route: 045
     Dates: end: 202108
  4. MYLAN PANTOPRAZOLE [Concomitant]
     Active Substance: PANTOPRAZOLE SODIUM
     Indication: ULCER
     Dosage: 40 MG
     Route: 048
     Dates: end: 202108
  5. PEARINDA PLUS [Concomitant]
     Active Substance: INDAPAMIDE\PERINDOPRIL
     Indication: HYPERTENSION
     Dosage: 4/1.25 MG
     Route: 048
     Dates: end: 202108
  6. ESTROFEM (ESTRADIOL HEMIHYDRATE) [Suspect]
     Active Substance: ESTRADIOL HEMIHYDRATE
     Indication: HORMONE THERAPY
     Dosage: 2 MG
     Route: 048
     Dates: end: 202108

REACTIONS (1)
  - Cerebrovascular accident [Fatal]
